FAERS Safety Report 4983850-2 (Version None)
Quarter: 2006Q2

REPORT INFORMATION
  Report Type: 
  Country: None (occurrence: None)
  Receive Date: 20060426
  Receipt Date: 20051020
  Transmission Date: 20061013
  Serious: Yes (Hospitalization, Disabling)
  Sender: FDA-Public Use
  Company Number: US-MERCK-0510USA08555

PATIENT
  Age: 64 Year
  Sex: Male
  Weight: 80 kg

DRUGS (4)
  1. VIOXX [Suspect]
     Indication: PAIN
     Route: 048
     Dates: start: 19990101, end: 20040101
  2. VIOXX [Suspect]
     Indication: INFLAMMATION
     Route: 048
     Dates: start: 19990101, end: 20040101
  3. NIFEDIPINE [Concomitant]
     Route: 065
  4. GLUCOPHAGE [Concomitant]
     Route: 065

REACTIONS (7)
  - ABDOMINAL PAIN UPPER [None]
  - ACUTE MYOCARDIAL INFARCTION [None]
  - BLOOD CHOLESTEROL INCREASED [None]
  - CHEST PAIN [None]
  - CORONARY ARTERY DISEASE [None]
  - DIABETES MELLITUS NON-INSULIN-DEPENDENT [None]
  - HYPERTENSION [None]
